FAERS Safety Report 22255395 (Version 1)
Quarter: 2023Q2

REPORT INFORMATION
  Report Type: Spontaneous
  Country: FR (occurrence: FR)
  Receive Date: 20230426
  Receipt Date: 20230426
  Transmission Date: 20230722
  Serious: Yes (Other)
  Sender: FDA-Public Use
  Company Number: FR-MYLANLABS-2023M1043525

PATIENT
  Age: 64 Year
  Sex: Female

DRUGS (2)
  1. TAMOXIFEN [Suspect]
     Active Substance: TAMOXIFEN
     Indication: Breast cancer metastatic
     Dosage: 20 MILLIGRAM, QD
     Route: 065
  2. Lamaline [Concomitant]
     Dosage: UNK
     Route: 065

REACTIONS (3)
  - Pulmonary sarcoidosis [Unknown]
  - Chest pain [Unknown]
  - Arthralgia [Unknown]
